FAERS Safety Report 11499641 (Version 1)
Quarter: 2015Q3

REPORT INFORMATION
  Report Type: Spontaneous
  Country: US (occurrence: None)
  Receive Date: 20150910
  Receipt Date: 20150910
  Transmission Date: 20151125
  Serious: Yes (Other)
  Sender: FDA-Public Use
  Company Number: None

PATIENT
  Age: 70 Year
  Sex: Male
  Weight: 74.84 kg

DRUGS (12)
  1. BABY ASPIRIN [Concomitant]
     Active Substance: ASPIRIN
  2. GLIMEPRIDE [Concomitant]
     Active Substance: GLIMEPIRIDE
  3. CLONIDINE. [Concomitant]
     Active Substance: CLONIDINE
  4. HUMALOG KWIKPEN [Concomitant]
     Active Substance: INSULIN LISPRO
  5. CLONOZEPAM (GENERIC FOR KLONOPIN) [Concomitant]
     Active Substance: CLONAZEPAM
  6. TRAMADOL. [Concomitant]
     Active Substance: TRAMADOL
  7. HYDROCODONE BITARTRATE AND ACETAMINOPHEN [Concomitant]
     Active Substance: ACETAMINOPHEN\HYDROCODONE BITARTRATE
  8. TRIAMT/HCTZ [Concomitant]
     Active Substance: HYDROCHLOROTHIAZIDE\TRIAMTERENE
  9. VITAMIN D3 [Concomitant]
     Active Substance: CHOLECALCIFEROL
  10. CLOPIDOGREL [Concomitant]
     Active Substance: CLOPIDOGREL BISULFATE
  11. HYDROCODONE/ACETAMINOPHEN [Suspect]
     Active Substance: ACETAMINOPHEN\HYDROCODONE
     Indication: PAIN
     Dosage: 10-325; 1/2 PILL, EVERY 3-4 HRS
     Route: 048
  12. RAMIPRIL. [Concomitant]
     Active Substance: RAMIPRIL

REACTIONS (6)
  - Product substitution issue [None]
  - Drug withdrawal syndrome [None]
  - Drug ineffective [None]
  - Feeling cold [None]
  - Economic problem [None]
  - Product formulation issue [None]

NARRATIVE: CASE EVENT DATE: 20150815
